FAERS Safety Report 5316803-5 (Version None)
Quarter: 2007Q2

REPORT INFORMATION
  Report Type: 
  Country: None (occurrence: None)
  Receive Date: 20070501
  Receipt Date: 20070501
  Transmission Date: 20071010
  Serious: Yes (Life-Threatening, Hospitalization)
  Sender: FDA-Public Use
  Company Number: None

PATIENT
  Sex: Female

DRUGS (2)
  1. AVASTIN [Suspect]
     Indication: COLON CANCER METASTATIC
     Dosage: 1130 MG ONCE IV
     Route: 042
     Dates: start: 20070423
  2. AVASTIN [Suspect]
     Indication: COLON CANCER METASTATIC
     Dosage: 1130 MG ONCE IV
     Route: 042
     Dates: start: 20070424

REACTIONS (6)
  - CONVULSION [None]
  - DEHYDRATION [None]
  - DIABETIC NEUROPATHY [None]
  - NAUSEA [None]
  - REVERSIBLE POSTERIOR LEUKOENCEPHALOPATHY SYNDROME [None]
  - VOMITING [None]
